FAERS Safety Report 25668333 (Version 3)
Quarter: 2025Q3

REPORT INFORMATION
  Report Type: Report from Study
  Country: EU (occurrence: EU)
  Receive Date: 20250812
  Receipt Date: 20250909
  Transmission Date: 20251020
  Serious: Yes (Hospitalization, Other)
  Sender: BRISTOL-MYERS SQUIBB COMPANY
  Company Number: EU-BRISTOL-MYERS SQUIBB COMPANY-2025-110794

PATIENT
  Age: 79 Year
  Sex: Male
  Weight: 65 kg

DRUGS (10)
  1. NIVOLUMAB [Suspect]
     Active Substance: NIVOLUMAB
     Indication: Non-small cell lung cancer metastatic
     Dosage: ROUTE OF ADMINISTRATION: EV; FREQUENCY: 21 DAYS
     Dates: start: 20250116
  2. NELVUTAMIG [Suspect]
     Active Substance: NELVUTAMIG
     Indication: Non-small cell lung cancer metastatic
     Dosage: ROUTE OF ADMINISTRATION: EV; FREQUENCY: 42 DAYS
     Dates: start: 20250116
  3. PANTOPRAZOLO DOC [Concomitant]
     Indication: Gastrointestinal disorder prophylaxis
     Dosage: G. 14CPR,
     Dates: start: 20241224
  4. DEXAMETHASONE SODIUM PHOSPHATE [Concomitant]
     Active Substance: DEXAMETHASONE SODIUM PHOSPHATE
     Indication: Premedication
     Dates: start: 20250115
  5. FOLIC ACID [Concomitant]
     Active Substance: FOLIC ACID
     Indication: Premedication
     Dosage: 20CPS
     Dates: start: 20241224
  6. FILGRASTIM [Concomitant]
     Active Substance: FILGRASTIM
     Indication: Prophylaxis
     Dosage: 30MU, 3 EVERY 2 WEEKS
     Dates: start: 20250117
  7. ENTECAVIR [Concomitant]
     Active Substance: ENTECAVIR
     Indication: Antiviral prophylaxis
     Dates: start: 20250110
  8. BISOPROLOL FUMARATE [Concomitant]
     Active Substance: BISOPROLOL FUMARATE
     Indication: Hypertension
     Dosage: 28CPR RIV
     Dates: start: 20200210
  9. HYDROCHLOROTHIAZIDE\IRBESARTAN [Concomitant]
     Active Substance: HYDROCHLOROTHIAZIDE\IRBESARTAN
     Indication: Hypertension
     Dosage: 28CPR 150MG+12.5MG
     Dates: start: 20200510
  10. MANIDIPINE [Concomitant]
     Active Substance: MANIDIPINE
     Indication: Hypertension
     Dosage: 28CPR
     Dates: start: 20200510

REACTIONS (6)
  - Immunotoxicity [Recovering/Resolving]
  - Blood creatinine increased [Recovering/Resolving]
  - Acute kidney injury [Recovering/Resolving]
  - Fall [Unknown]
  - Head injury [Unknown]
  - Limb injury [Unknown]

NARRATIVE: CASE EVENT DATE: 20250707
